FAERS Safety Report 4311625-6 (Version None)
Quarter: 2004Q1

REPORT INFORMATION
  Report Type: 
  Country: None (occurrence: None)
  Receive Date: 20040303
  Receipt Date: 20040303
  Transmission Date: 20041129
  Serious: Yes (Other)
  Sender: FDA-Public Use
  Company Number: None

PATIENT
  Sex: Female
  Weight: 86.1834 kg

DRUGS (2)
  1. ZICAM COLD REMEDY GEL TECH [Suspect]
     Dosage: 1-2 SPARYS EVENING 2 NASAL
     Route: 045
     Dates: start: 20031111, end: 20031113
  2. ZICAM COLD REMEDY GEL TECH [Suspect]
     Dosage: 1-2 SPARYS EVENING 2 NASAL
     Route: 045
     Dates: start: 20040106, end: 20040108

REACTIONS (3)
  - BURNING SENSATION [None]
  - DISCOMFORT [None]
  - PAROSMIA [None]
